FAERS Safety Report 7908006-2 (Version None)
Quarter: 2011Q4

REPORT INFORMATION
  Report Type: 
  Country: None (occurrence: None)
  Receive Date: 20111110
  Receipt Date: 20111101
  Transmission Date: 20120403
  Serious: Yes (Other)
  Sender: FDA-Public Use
  Company Number: US-ASTRAZENECA-2008UW24892

PATIENT
  Age: 70 Year
  Sex: Female

DRUGS (2)
  1. ARIMIDEX [Suspect]
     Route: 048
     Dates: start: 20081029
  2. TAMOXIFEN CITRATE [Suspect]
     Route: 048

REACTIONS (15)
  - GASTRIC DISORDER [None]
  - LOWER LIMB FRACTURE [None]
  - BREAST CANCER [None]
  - OEDEMA PERIPHERAL [None]
  - CHEST PAIN [None]
  - STRESS [None]
  - ABDOMINAL DISCOMFORT [None]
  - GALLBLADDER DISORDER [None]
  - BONE NEOPLASM MALIGNANT [None]
  - ANXIETY [None]
  - SKIN CANCER [None]
  - LEUKAEMIA [None]
  - BACK PAIN [None]
  - BONE DECALCIFICATION [None]
  - MALAISE [None]
